FAERS Safety Report 14939950 (Version 1)
Quarter: 2018Q2

REPORT INFORMATION
  Report Type: Spontaneous
  Country: FR (occurrence: FR)
  Receive Date: 20180525
  Receipt Date: 20180525
  Transmission Date: 20180711
  Serious: Yes (Hospitalization, Other)
  Sender: FDA-Public Use
  Company Number: FR-PFIZER INC-2018210391

PATIENT
  Age: 27 Year
  Sex: Male

DRUGS (7)
  1. VINCRISTINE SULFATE. [Suspect]
     Active Substance: VINCRISTINE SULFATE
     Indication: GLIONEURONAL TUMOUR
     Dosage: 2 MG, 1X/DAY
     Route: 042
     Dates: start: 20170308, end: 20170719
  2. BELUSTINE [Suspect]
     Active Substance: LOMUSTINE
     Indication: GLIONEURONAL TUMOUR
     Dosage: 160 MG, 1X/DAY
     Route: 048
     Dates: start: 20170301, end: 20170712
  3. KEPPRA [Suspect]
     Active Substance: LEVETIRACETAM
     Indication: EPILEPSY
     Dosage: 2 DF, 1X/DAY
     Route: 048
  4. TAVANIC [Suspect]
     Active Substance: LEVOFLOXACIN
     Indication: PYREXIA
     Dosage: UNK
     Route: 048
     Dates: start: 20170804, end: 20170810
  5. AUGMENTIN [Suspect]
     Active Substance: AMOXICILLIN\CLAVULANATE POTASSIUM
     Indication: PYREXIA
     Dosage: 3 G, 1X/DAY
     Route: 042
     Dates: start: 20170731, end: 20170810
  6. NATULAN [Suspect]
     Active Substance: PROCARBAZINE HYDROCHLORIDE
     Indication: GLIONEURONAL TUMOUR
     Dosage: 100 MG, 1X/DAY
     Route: 048
     Dates: start: 20170308, end: 20170801
  7. PARACETAMOL [Suspect]
     Active Substance: ACETAMINOPHEN
     Indication: PYREXIA
     Dosage: 4 G, 1X/DAY
     Route: 042
     Dates: start: 20170731, end: 20170807

REACTIONS (1)
  - Liver injury [Recovering/Resolving]

NARRATIVE: CASE EVENT DATE: 20170807
